FAERS Safety Report 15104277 (Version 1)
Quarter: 2018Q2

REPORT INFORMATION
  Report Type: Spontaneous
  Country: US (occurrence: US)
  Receive Date: 20180611
  Receipt Date: 20180611
  Transmission Date: 20180711
  Serious: No
  Sender: FDA-Public Use
  Company Number: None

PATIENT
  Age: 30 Year
  Sex: Female

DRUGS (1)
  1. COPAXONE [Suspect]
     Active Substance: GLATIRAMER ACETATE
     Dates: start: 20180611, end: 20180611

REACTIONS (6)
  - Sleep disorder [None]
  - Pruritus [None]
  - Somnolence [None]
  - Erythema [None]
  - Amnesia [None]
  - Skin warm [None]

NARRATIVE: CASE EVENT DATE: 20180611
